FAERS Safety Report 8205059-1 (Version None)
Quarter: 2012Q1

REPORT INFORMATION
  Report Type: 
  Country: None (occurrence: None)
  Receive Date: 20120313
  Receipt Date: 20120229
  Transmission Date: 20120608
  Serious: Yes (Hospitalization)
  Sender: FDA-Public Use
  Company Number: IT-ROCHE-1038463

PATIENT
  Sex: Male

DRUGS (2)
  1. LUCENTIS [Suspect]
     Indication: MACULAR DEGENERATION
     Route: 050
     Dates: start: 20111222
  2. LUCENTIS [Suspect]
     Route: 050
     Dates: start: 20120110

REACTIONS (1)
  - ARTERIOSCLEROSIS CORONARY ARTERY [None]
